FAERS Safety Report 9262029 (Version 1)
Quarter: 2013Q2

REPORT INFORMATION
  Report Type: Spontaneous
  Country: US (occurrence: US)
  Receive Date: 20130429
  Receipt Date: 20130429
  Transmission Date: 20140414
  Serious: No
  Sender: FDA-Public Use
  Company Number: US-BAYER-2013-052982

PATIENT
  Age: 70 Year
  Sex: Male
  Weight: 113 kg

DRUGS (5)
  1. ONE A DAY MEN^S HEALTH FORMULA [Suspect]
     Dosage: 1 DF, QD WITH FOOD
     Route: 048
     Dates: start: 2013, end: 20130420
  2. ALEVE CAPLET [Suspect]
     Indication: ARTHRITIS
     Dosage: 1 DF, BID
     Route: 048
     Dates: start: 2010
  3. VITAMIN D [Concomitant]
  4. STATIN [Concomitant]
  5. PRILOSEC [Concomitant]

REACTIONS (2)
  - Foreign body [None]
  - Incorrect drug administration duration [None]
